FAERS Safety Report 16752115 (Version 1)
Quarter: 2019Q3

REPORT INFORMATION
  Report Type: Spontaneous
  Country: US (occurrence: US)
  Receive Date: 20190828
  Receipt Date: 20190828
  Transmission Date: 20191005
  Serious: Yes (Other)
  Sender: FDA-Public Use
  Company Number: US-NOVOPROD-680446

PATIENT
  Age: 28 Year
  Sex: Female

DRUGS (1)
  1. TRESIBA [Suspect]
     Active Substance: INSULIN DEGLUDEC
     Indication: TYPE 1 DIABETES MELLITUS
     Dosage: 12 IU, QD (12 UNITS ONCE A DAY)
     Route: 058
     Dates: start: 201811

REACTIONS (2)
  - Pemphigoid [Unknown]
  - Sinusitis [Unknown]

NARRATIVE: CASE EVENT DATE: 201811
